FAERS Safety Report 20861259 (Version 1)
Quarter: 2022Q2

REPORT INFORMATION
  Report Type: Spontaneous
  Country: US (occurrence: None)
  Receive Date: 20220520
  Receipt Date: 20220520
  Transmission Date: 20220721
  Serious: Yes (Other)
  Sender: FDA-Public Use
  Company Number: None

PATIENT
  Age: 59 Year
  Sex: Female
  Weight: 112.5 kg

DRUGS (7)
  1. JARDIANCE [Suspect]
     Active Substance: EMPAGLIFLOZIN
     Indication: Diabetes mellitus
  2. TOUJEO [Concomitant]
     Active Substance: INSULIN GLARGINE
  3. OZEMPIC [Concomitant]
     Active Substance: SEMAGLUTIDE
  4. METFORMIN [Concomitant]
     Active Substance: METFORMIN HYDROCHLORIDE
  5. GLIPIZIDE [Concomitant]
     Active Substance: GLIPIZIDE
  6. LISINOPRIL [Concomitant]
     Active Substance: LISINOPRIL
  7. CITALOPRAM [Concomitant]
     Active Substance: CITALOPRAM HYDROBROMIDE

REACTIONS (4)
  - Genital swelling [None]
  - Vulvovaginal mycotic infection [None]
  - Urinary tract infection [None]
  - Feeling abnormal [None]

NARRATIVE: CASE EVENT DATE: 20220110
